FAERS Safety Report 19518949 (Version 1)
Quarter: 2021Q3

REPORT INFORMATION
  Report Type: Spontaneous
  Country: US (occurrence: US)
  Receive Date: 20210712
  Receipt Date: 20210712
  Transmission Date: 20211014
  Serious: Yes (Death, Other)
  Sender: FDA-Public Use
  Company Number: US-BRISTOL-MYERS SQUIBB COMPANY-BMS-2021-067063

PATIENT
  Age: 71 Year
  Sex: Male

DRUGS (2)
  1. OPDIVO [Suspect]
     Active Substance: NIVOLUMAB
     Indication: BRAIN CANCER METASTATIC
     Dosage: VIAL, 298 MILLIGRAM, EVERY 21 DAYS
     Route: 042
     Dates: start: 2021
  2. YERVOY [Suspect]
     Active Substance: IPILIMUMAB
     Indication: BRAIN CANCER METASTATIC
     Dosage: VIAL, 99 MILLIGRAM, EVERY 21 DAYS
     Route: 042
     Dates: start: 2021

REACTIONS (2)
  - Death [Fatal]
  - Off label use [Unknown]

NARRATIVE: CASE EVENT DATE: 20210703
